FAERS Safety Report 5012005-0 (Version None)
Quarter: 2006Q2

REPORT INFORMATION
  Report Type: 
  Country: None (occurrence: None)
  Receive Date: 20060524
  Receipt Date: 20060520
  Transmission Date: 20061013
  Serious: Yes (Other)
  Sender: FDA-Public Use
  Company Number: 223246

PATIENT
  Age: 65 Year
  Sex: Male

DRUGS (1)
  1. AVASTIN [Suspect]
     Indication: ASTROCYTOMA
     Dates: start: 20060207

REACTIONS (4)
  - ANOXIA [None]
  - ASPIRATION [None]
  - BRAIN DAMAGE [None]
  - CHOKING [None]
